FAERS Safety Report 13946346 (Version 1)
Quarter: 2017Q3

REPORT INFORMATION
  Report Type: Spontaneous
  Country: FR (occurrence: FR)
  Receive Date: 20170907
  Receipt Date: 20170907
  Transmission Date: 20171128
  Serious: Yes (Hospitalization)
  Sender: FDA-Public Use
  Company Number: FR-SA-2017SA148705

PATIENT
  Age: 24 Year
  Sex: Male

DRUGS (2)
  1. RABIES VACCINE [Suspect]
     Active Substance: RABIES VACCINE
     Indication: RABIES IMMUNISATION
     Route: 030
     Dates: start: 20170703, end: 20170703
  2. HUMAN RABIES IMMUNOGLOBULIN [Suspect]
     Active Substance: RABIES IMMUNE GLOBULIN (HUMAN)
     Indication: RABIES IMMUNISATION
     Route: 030
     Dates: start: 20170703, end: 20170703

REACTIONS (2)
  - Peripheral ischaemia [Recovered/Resolved]
  - Thrombophlebitis [Recovered/Resolved]

NARRATIVE: CASE EVENT DATE: 20170705
